FAERS Safety Report 5326522-7 (Version None)
Quarter: 2007Q2

REPORT INFORMATION
  Report Type: 
  Country: None (occurrence: None)
  Receive Date: 20070516
  Receipt Date: 20070507
  Transmission Date: 20071010
  Serious: Yes (Hospitalization)
  Sender: FDA-Public Use
  Company Number: FR-ABBOTT-07P-056-0367233-00

PATIENT
  Age: 74 Year
  Sex: Male

DRUGS (9)
  1. LIPANTHYL [Suspect]
     Indication: HYPERLIPIDAEMIA
     Route: 048
  2. LANSOPRAZOLE [Suspect]
     Indication: DRUG USE FOR UNKNOWN INDICATION
     Route: 048
  3. ALPRAZOLAM [Suspect]
     Indication: ANXIETY
     Route: 048
  4. GLIMEPIRIDE [Suspect]
     Indication: DIABETES MELLITUS
     Route: 048
  5. METFORMIN HCL [Suspect]
     Indication: DIABETES MELLITUS
     Route: 048
  6. CLOMIPRAMINE HYDROCHLORIDE [Suspect]
     Indication: DEPRESSION
     Route: 048
  7. ASPIRIN [Concomitant]
     Indication: DRUG USE FOR UNKNOWN INDICATION
     Route: 065
  8. CLOBAZAM [Concomitant]
     Indication: DRUG USE FOR UNKNOWN INDICATION
     Route: 065
  9. MACROGOL [Concomitant]
     Indication: DRUG USE FOR UNKNOWN INDICATION
     Route: 065

REACTIONS (3)
  - ECZEMA [None]
  - LICHENIFICATION [None]
  - PRURITUS [None]
